FAERS Safety Report 5352038-8 (Version None)
Quarter: 2007Q2

REPORT INFORMATION
  Report Type: 
  Country: None (occurrence: None)
  Receive Date: 20070607
  Receipt Date: 20070607
  Transmission Date: 20071010
  Serious: Yes (Hospitalization)
  Sender: FDA-Public Use
  Company Number: None

PATIENT
  Sex: Female
  Weight: 96.72 kg

DRUGS (4)
  1. CISPLATIN [Suspect]
     Dosage: 97 MG
  2. TOPOTECAN [Suspect]
     Dosage: 1.5 MG
  3. ANZEMET [Concomitant]
  4. DECADRON [Concomitant]

REACTIONS (1)
  - BLOOD GLUCOSE INCREASED [None]
